FAERS Safety Report 4550094-8 (Version None)
Quarter: 2005Q1

REPORT INFORMATION
  Report Type: 
  Country: None (occurrence: None)
  Receive Date: 20050110
  Receipt Date: 20050103
  Transmission Date: 20050727
  Serious: Yes (Other)
  Sender: FDA-Public Use
  Company Number: CHNY2004DE02322

PATIENT
  Age: 66 Year
  Sex: Male
  Weight: 94 kg

DRUGS (3)
  1. NICOTINE [Suspect]
     Indication: SMOKING CESSATION THERAPY
     Dosage: 21 MG, QD, TRANSDERMAL
     Route: 062
     Dates: start: 20041120, end: 20041213
  2. ALPRAZOLAM [Suspect]
     Indication: CLAUSTROPHOBIA
     Dosage: 1 MG, QID
  3. TRUXAL (CHLORPROTHIXENE HYDROCHLORIDE) [Concomitant]

REACTIONS (20)
  - APPLICATION SITE DERMATITIS [None]
  - APPLICATION SITE PRURITUS [None]
  - APPLICATION SITE PUSTULES [None]
  - BLINDNESS TRANSIENT [None]
  - BLINDNESS UNILATERAL [None]
  - BRONCHITIS [None]
  - CONSTIPATION [None]
  - DRUG INTERACTION [None]
  - DYSPNOEA EXERTIONAL [None]
  - EYE DISORDER [None]
  - FATIGUE [None]
  - FLATULENCE [None]
  - HOT FLUSH [None]
  - HYPERHIDROSIS [None]
  - INFLUENZA LIKE ILLNESS [None]
  - INSOMNIA [None]
  - LYMPH NODE PAIN [None]
  - MOVEMENT DISORDER [None]
  - THYROID DISORDER [None]
  - VISUAL DISTURBANCE [None]
